FAERS Safety Report 19430893 (Version 1)
Quarter: 2021Q2

REPORT INFORMATION
  Report Type: Spontaneous
  Country: CA (occurrence: CA)
  Receive Date: 20210618
  Receipt Date: 20210618
  Transmission Date: 20210717
  Serious: Yes (Other)
  Sender: FDA-Public Use
  Company Number: CA-JNJFOC-20210632910

PATIENT
  Age: 23 Year
  Sex: Female
  Weight: 49 kg

DRUGS (2)
  1. INFLIXIMAB, RECOMBINANT [Suspect]
     Active Substance: INFLIXIMAB
     Indication: CROHN^S DISEASE
     Route: 042
  2. PREDNISONE. [Concomitant]
     Active Substance: PREDNISONE

REACTIONS (5)
  - Gastrointestinal disorder [Unknown]
  - Post procedural discharge [Unknown]
  - Product use issue [Unknown]
  - Postoperative wound infection [Unknown]
  - Off label use [Unknown]
